FAERS Safety Report 8712602 (Version 2)
Quarter: 2013Q2

REPORT INFORMATION
  Report Type: Spontaneous
  Country: US (occurrence: US)
  Receive Date: 20120808
  Receipt Date: 20130617
  Transmission Date: 20140414
  Serious: Yes (Life-Threatening, Hospitalization)
  Sender: FDA-Public Use
  Company Number: US-BAYER-2012-078985

PATIENT
  Age: 36 Year
  Sex: Female
  Weight: 58.5 kg

DRUGS (6)
  1. YAZ [Suspect]
     Indication: CONTRACEPTION
  2. YASMIN [Suspect]
  3. VALTREX [Concomitant]
     Dosage: UNK UNK, PRN
     Route: 048
  4. NEXIUM [Concomitant]
     Dosage: 40 MG, DAILY
     Route: 048
  5. PERCOCET [Concomitant]
     Dosage: 1 EVERY 4-6 HOURS AS NEEDED
     Route: 048
  6. ALEVE [Concomitant]

REACTIONS (9)
  - Pulmonary embolism [None]
  - Deep vein thrombosis [None]
  - Emotional distress [None]
  - Injury [None]
  - Pain [None]
  - Anxiety [None]
  - Anhedonia [None]
  - Fear of disease [None]
  - Quality of life decreased [None]
